FAERS Safety Report 9659425 (Version 1)
Quarter: 2013Q4

REPORT INFORMATION
  Report Type: Spontaneous
  Country: US (occurrence: US)
  Receive Date: 20131031
  Receipt Date: 20131031
  Transmission Date: 20140711
  Serious: Yes (Other)
  Sender: FDA-Public Use
  Company Number: US-JNJCP-30000176740

PATIENT
  Sex: Female
  Weight: 100 kg

DRUGS (11)
  1. AVEENO POSITIVELY ?RADIANT TINTED MOISTURIZER SPF 30 MEDIUM? [Suspect]
     Route: 061
     Dates: start: 20130813
  2. ADVAIR [Concomitant]
     Indication: ASTHMA
     Dosage: 500 MG TWICE A DAY SINCE EIGHT YEARS
  3. BABY ASPRIN [Concomitant]
     Indication: ANTICOAGULANT THERAPY
     Dosage: ONE A DAY SINCE THREE YEARS
  4. GENERIC CLARITIN [Concomitant]
     Indication: HYPERSENSITIVITY
     Dosage: ONE TO TWO TIMES A DAY SINCE SIX YEARS
  5. INSULIN [Concomitant]
     Indication: DIABETES MELLITUS
     Dosage: 20MG ONCE A DAY, SINCE FOUR MONTHS
  6. METFORMIN [Concomitant]
     Indication: DIABETES MELLITUS
     Dosage: 1000MG A DAY SINCE THREE YEARS
  7. MULTI VITAMIN [Concomitant]
     Indication: ROUTINE HEALTH MAINTENANCE
     Dosage: ONCE A DAY, SINCE ONE YEAR
  8. NASONEX [Concomitant]
     Indication: SINUS DISORDER
     Dosage: ONE A DAY, SINCE TEN YEARS
  9. PROVENTIL [Concomitant]
     Indication: ASTHMA
     Dosage: AS NEEDED, SINCE TWENTY YEARS
  10. RAMIPRIL [Concomitant]
     Indication: HYPERTENSION
     Dosage: 20 MG A DAY SINCE SIX YEARS
  11. XEONOEX ALBUTEROL [Concomitant]
     Indication: ASTHMA
     Dosage: AS NEEDED SINCE TWENTY YEARS

REACTIONS (3)
  - Skin injury [Unknown]
  - Product container issue [Unknown]
  - Localised infection [Unknown]
